FAERS Safety Report 17297606 (Version 3)
Quarter: 2024Q3

REPORT INFORMATION
  Report Type: Spontaneous
  Country: KR (occurrence: KR)
  Receive Date: 20200122
  Receipt Date: 20240912
  Transmission Date: 20241016
  Serious: Yes (Death, Life-Threatening, Hospitalization, Other)
  Sender: ALKEM
  Company Number: None

PATIENT
  Age: 61 Year
  Sex: Male

DRUGS (3)
  1. MYCOPHENOLATE MOFETIL [Suspect]
     Active Substance: MYCOPHENOLATE MOFETIL
     Indication: Transplant rejection
     Dosage: UNKNOWN
     Route: 065
  2. TACROLIMUS [Suspect]
     Active Substance: TACROLIMUS
     Indication: Transplant rejection
     Dosage: UNKNOWN
     Route: 065
  3. PREDNISOLONE [Suspect]
     Active Substance: PREDNISOLONE
     Indication: Transplant rejection
     Dosage: UNKNOWN
     Route: 065

REACTIONS (10)
  - Multiple organ dysfunction syndrome [Fatal]
  - Septic shock [Fatal]
  - Tricuspid valve incompetence [Unknown]
  - Status epilepticus [Not Recovered/Not Resolved]
  - Mitral valve incompetence [Unknown]
  - Atrioventricular block complete [Not Recovered/Not Resolved]
  - Embolic cerebral infarction [Not Recovered/Not Resolved]
  - Aspergillus infection [Not Recovered/Not Resolved]
  - Fungal endocarditis [Not Recovered/Not Resolved]
  - Haematological infection [Unknown]

NARRATIVE: CASE EVENT DATE: 20170101
